FAERS Safety Report 5291793-2 (Version None)
Quarter: 2007Q2

REPORT INFORMATION
  Report Type: 
  Country: None (occurrence: None)
  Receive Date: 20070410
  Receipt Date: 20070403
  Transmission Date: 20071010
  Serious: Yes (Hospitalization, Other)
  Sender: FDA-Public Use
  Company Number: JP-AVENTIS-200710130JP

PATIENT
  Age: 47 Year
  Sex: Male
  Weight: 60 kg

DRUGS (2)
  1. AMARYL [Suspect]
     Indication: DIABETES MELLITUS
     Route: 048
     Dates: start: 20061208, end: 20061215
  2. BASEN [Suspect]
     Indication: DIABETES MELLITUS
     Route: 048
     Dates: start: 20061126, end: 20061215

REACTIONS (1)
  - RENAL FAILURE ACUTE [None]
